FAERS Safety Report 5426760-9 (Version None)
Quarter: 2007Q3

REPORT INFORMATION
  Report Type: 
  Country: None (occurrence: None)
  Receive Date: 20070731
  Receipt Date: 20070409
  Transmission Date: 20080115
  Serious: No
  Sender: FDA-Public Use
  Company Number: 2007PV032527

PATIENT
  Age: 69 Year
  Sex: Female
  Weight: 95.3 kg

DRUGS (6)
  1. EXENATIDE(EXENATIDE) PEN, DISPOSABLE [Suspect]
     Indication: TYPE 2 DIABETES MELLITUS
     Dosage: 5 UG, SUBCUTANEOUS 5 UG, 10 UG, 5 UG
     Route: 058
     Dates: start: 20070301, end: 20070320
  2. EXENATIDE(EXENATIDE) PEN, DISPOSABLE [Suspect]
     Indication: TYPE 2 DIABETES MELLITUS
     Dosage: 5 UG, SUBCUTANEOUS 5 UG, 10 UG, 5 UG
     Route: 058
     Dates: start: 20070321
  3. EXENATIDE(EXENATIDE) PEN, DISPOSABLE [Suspect]
     Indication: TYPE 2 DIABETES MELLITUS
     Dosage: 5 UG, SUBCUTANEOUS 5 UG, 10 UG, 5 UG
     Route: 058
     Dates: start: 20070330
  4. EXENATIDE(EXENATIDE) PEN, DISPOSABLE [Suspect]
     Indication: TYPE 2 DIABETES MELLITUS
     Dosage: 5 UG, SUBCUTANEOUS 5 UG, 10 UG, 5 UG
     Route: 058
     Dates: start: 20070330
  5. THYROID TAB [Concomitant]
  6. EXENATIDE(EXENATIDE) PEN, DISPOSABLE [Suspect]

REACTIONS (6)
  - ABDOMINAL DISTENSION [None]
  - ABDOMINAL PAIN UPPER [None]
  - CONSTIPATION [None]
  - FLATULENCE [None]
  - HYPERCHLORHYDRIA [None]
  - NAUSEA [None]
